FAERS Safety Report 7325852-7 (Version None)
Quarter: 2011Q1

REPORT INFORMATION
  Report Type: 
  Country: None (occurrence: None)
  Receive Date: 20110218
  Receipt Date: 20110208
  Transmission Date: 20110831
  Serious: Yes (Other)
  Sender: FDA-Public Use
  Company Number: 2011SP005926

PATIENT
  Sex: Female

DRUGS (1)
  1. IMPLANON [Suspect]
     Dates: start: 20100925

REACTIONS (11)
  - HEADACHE [None]
  - IMPLANT SITE PAIN [None]
  - IMPLANT SITE REACTION [None]
  - HALLUCINATION [None]
  - DIZZINESS [None]
  - MIGRAINE [None]
  - SYNCOPE [None]
  - HYPOAESTHESIA [None]
  - PREGNANCY WITH IMPLANT CONTRACEPTIVE [None]
  - DRUG EXPOSURE DURING PREGNANCY [None]
  - ASTHENIA [None]
